FAERS Safety Report 5209640-3 (Version None)
Quarter: 2006Q4

REPORT INFORMATION
  Report Type: 
  Country: None (occurrence: None)
  Receive Date: 20061122
  Receipt Date: 20051110
  Transmission Date: 20070319
  Serious: Yes (Hospitalization, Other)
  Sender: FDA-Public Use
  Company Number: 2005143038

PATIENT
  Age: 54 Year
  Sex: Male

DRUGS (12)
  1. LIPITOR [Suspect]
     Indication: HYPERLIPIDAEMIA
     Dosage: 20 MG (20 MG, 1 IN 1 D)
     Dates: start: 20050922
  2. PREDNISONE TAB [Concomitant]
  3. HYDROXYCHLOROQUINE SULFATE [Concomitant]
  4. METHOTREXATE [Concomitant]
  5. DARVOCET [Concomitant]
  6. CELEBREX [Concomitant]
  7. PRILOSEC [Concomitant]
  8. ALLEGRA [Concomitant]
  9. FLOMAX [Concomitant]
  10. EFFEXOR [Concomitant]
  11. REGLAN [Concomitant]
  12. HUMIRA [Concomitant]

REACTIONS (2)
  - RENAL FAILURE ACUTE [None]
  - RHABDOMYOLYSIS [None]
